FAERS Safety Report 4424958-X (Version None)
Quarter: 2004Q3

REPORT INFORMATION
  Report Type: 
  Country: None (occurrence: None)
  Receive Date: 20040813
  Receipt Date: 20020412
  Transmission Date: 20050211
  Serious: Yes (Other)
  Sender: FDA-Public Use
  Company Number: PHHO2002ZA02969

PATIENT
  Age: 44 Year
  Sex: Female
  Weight: 64 kg

DRUGS (7)
  1. TEGASEROD VS PLACEBO [Suspect]
     Indication: CONSTIPATION
     Dosage: 2 MG, BID
     Route: 048
     Dates: start: 20020308, end: 20020411
  2. TEGASEROD VS PLACEBO [Suspect]
     Dosage: 2 MG, BID
     Route: 048
     Dates: start: 20020422, end: 20020531
  3. TEGASEROD VS PLACEBO [Suspect]
     Route: 048
     Dates: end: 20030504
  4. PYNSTOP [Concomitant]
     Dates: start: 20020402
  5. GAVISCON [Concomitant]
     Dates: start: 20020405
  6. SYNAP FORTE [Concomitant]
     Indication: BACK PAIN
  7. SYNDOL [Concomitant]
     Indication: BACK PAIN

REACTIONS (3)
  - ABDOMINAL PAIN [None]
  - COLITIS [None]
  - FREQUENT BOWEL MOVEMENTS [None]
